FAERS Safety Report 6909203-5 (Version None)
Quarter: 2010Q3

REPORT INFORMATION
  Report Type: 
  Country: None (occurrence: None)
  Receive Date: 20100716
  Receipt Date: 20090120
  Transmission Date: 20110219
  Serious: Yes (Death, Hospitalization, Other)
  Sender: FDA-Public Use
  Company Number: 2006008898

PATIENT
  Age: 55 Year
  Sex: Male
  Weight: 90.7 kg

DRUGS (7)
  1. CELEBREX [Suspect]
     Indication: ARTHRITIS
     Dosage: , 2X/DAY, 100MG 2DAYS
     Dates: start: 20000801, end: 20030101
  2. CELEBREX [Suspect]
     Indication: PAIN
     Dosage: , 2X/DAY, 100MG 2DAYS
     Dates: start: 20000801, end: 20030101
  3. CELEBREX [Suspect]
     Indication: ARTHRITIS
     Dosage: , 2X/DAY, 100MG 2DAYS
     Dates: start: 20000823, end: 20030101
  4. CELEBREX [Suspect]
     Indication: PAIN
     Dosage: , 2X/DAY, 100MG 2DAYS
     Dates: start: 20000823, end: 20030101
  5. BEXTRA [Suspect]
     Indication: ARTHRITIS
  6. BEXTRA [Suspect]
     Indication: PAIN
  7. CELEBREX [Suspect]
     Dosage: 100 MG, 2X/DAY
     Dates: start: 20000801, end: 20030101

REACTIONS (1)
  - MYOCARDIAL INFARCTION [None]
